FAERS Safety Report 9526849 (Version 1)
Quarter: 2013Q3

REPORT INFORMATION
  Report Type: Report from Study
  Country: US (occurrence: US)
  Receive Date: 20130916
  Receipt Date: 20130916
  Transmission Date: 20140515
  Serious: Yes (Other)
  Sender: FDA-Public Use
  Company Number: PHEH2013US018805

PATIENT
  Sex: Female
  Weight: 82 kg

DRUGS (9)
  1. AFINITOR [Suspect]
     Indication: BREAST CANCER METASTATIC
     Dosage: 10 MG, QD
     Route: 048
  2. AROMASIN [Concomitant]
     Indication: BREAST CANCER METASTATIC
  3. ALEVE [Concomitant]
     Dosage: 2 DF, DAILY
     Route: 048
  4. AP CALCIUM+VIT D [Concomitant]
     Dosage: 1 DF, BID
     Route: 048
  5. FLUTICASONE PROPIONATE [Concomitant]
  6. MULTI-VIT [Concomitant]
     Dosage: 1 DF, DAILY
     Route: 048
  7. VASOTEC [Concomitant]
     Dosage: 1 DF, DAILY
     Route: 048
  8. ZANTAC [Concomitant]
     Dosage: 150 MG, BID
     Route: 048
  9. ZOCOR [Concomitant]
     Dosage: 1 DF, DAILY
     Route: 048

REACTIONS (3)
  - Hypercalcaemia [Unknown]
  - Blood parathyroid hormone decreased [Unknown]
  - Lung infiltration [Unknown]
